FAERS Safety Report 6308961-0 (Version None)
Quarter: 2009Q3

REPORT INFORMATION
  Report Type: 
  Country: None (occurrence: None)
  Receive Date: 20090813
  Receipt Date: 20090408
  Transmission Date: 20100115
  Serious: Yes (Other)
  Sender: FDA-Public Use
  Company Number: US-JNJCH-2009008660

PATIENT
  Age: 60 Year
  Sex: Female
  Weight: 81.6 kg

DRUGS (7)
  1. LISTERINE WHITENING VIBRANT WHITE PRE-BRUSH RINSE [Suspect]
     Indication: DENTAL CARE
     Dosage: TEXT:UNSPECIFIED TWICE A DAY
     Route: 050
     Dates: start: 20090301, end: 20090319
  2. SINGULAIR [Concomitant]
     Indication: ASTHMA
     Dosage: TEXT:10 MG (FREQUENCY UNSPECIFIED)
     Route: 065
  3. RANEXA [Concomitant]
     Indication: CARDIAC DISORDER
     Dosage: TEXT:500 MG TWICE DAILY
     Route: 065
  4. IMDUR [Concomitant]
     Indication: CARDIAC DISORDER
     Dosage: TEXT:120 MG TWICE DAILY
     Route: 065
  5. SERTRALINE [Concomitant]
     Indication: DEPRESSION
     Dosage: TEXT:150 MG ONCE DAILY
     Route: 065
  6. ZANTAC [Concomitant]
     Indication: DRUG USE FOR UNKNOWN INDICATION
     Dosage: TEXT:UNSPECIFIED TWICE DAILY
     Route: 065
  7. NIASPAN [Concomitant]
     Indication: BLOOD CHOLESTEROL
     Dosage: TEXT:500 MG (FREQUENCY UNSPECIFIED)
     Route: 065

REACTIONS (3)
  - APPLICATION SITE BURN [None]
  - EATING DISORDER [None]
  - ORAL PAIN [None]
